FAERS Safety Report 8054796-0 (Version None)
Quarter: 2012Q1

REPORT INFORMATION
  Report Type: 
  Country: None (occurrence: None)
  Receive Date: 20120112
  Receipt Date: 20111231
  Transmission Date: 20120608
  Serious: Yes (Death)
  Sender: FDA-Public Use
  Company Number: 1150586

PATIENT
  Age: 55 Year
  Sex: Male

DRUGS (3)
  1. OXALIPLATIN [Suspect]
     Indication: RECTOSIGMOID CANCER
     Dosage: TOTAL DOSE OF 1,105 MG/M^2
  2. LEUCOVORIN CALCIUM [Concomitant]
  3. FLUOROURACIL [Concomitant]

REACTIONS (5)
  - NEUTROPENIA [None]
  - RESPIRATORY FAILURE [None]
  - MULTI-ORGAN FAILURE [None]
  - PULMONARY TOXICITY [None]
  - IDIOPATHIC PULMONARY FIBROSIS [None]
